FAERS Safety Report 6473558-9 (Version None)
Quarter: 2009Q4

REPORT INFORMATION
  Report Type: 
  Country: None (occurrence: None)
  Receive Date: 20091204
  Receipt Date: 20090216
  Transmission Date: 20100525
  Serious: Yes (Life-Threatening, Hospitalization)
  Sender: FDA-Public Use
  Company Number: JP-ELI_LILLY_AND_COMPANY-JP200901001141

PATIENT
  Sex: Male
  Weight: 50 kg

DRUGS (4)
  1. GEMZAR [Suspect]
     Indication: PANCREATIC CARCINOMA NON-RESECTABLE
     Dosage: 1400 MG, OTHER
     Route: 042
     Dates: start: 20080910, end: 20081119
  2. TS 1 [Concomitant]
     Indication: PANCREATIC CARCINOMA NON-RESECTABLE
     Dosage: 100 MG, DAILY (1/D)
     Route: 048
     Dates: start: 20080910, end: 20081125
  3. AMLODIPINE [Concomitant]
     Dosage: 2.5 MG, DAILY (1/D)
     Route: 048
  4. BEZATOL [Concomitant]
     Dosage: 200 MG, DAILY (1/D)
     Route: 048

REACTIONS (1)
  - INTERSTITIAL LUNG DISEASE [None]
